FAERS Safety Report 5166289-9 (Version None)
Quarter: 2006Q4

REPORT INFORMATION
  Report Type: 
  Country: None (occurrence: None)
  Receive Date: 20061124
  Receipt Date: 20061113
  Transmission Date: 20070319
  Serious: Yes (Other)
  Sender: FDA-Public Use
  Company Number: 149880USA

PATIENT
  Sex: Female

DRUGS (1)
  1. PROPOFOL [Suspect]
     Dates: start: 20060101, end: 20060101

REACTIONS (1)
  - TORSADE DE POINTES [None]
